FAERS Safety Report 16449315 (Version 1)
Quarter: 2019Q2

REPORT INFORMATION
  Report Type: Spontaneous
  Country: US (occurrence: US)
  Receive Date: 20190619
  Receipt Date: 20190619
  Transmission Date: 20190711
  Serious: Yes (Death, Hospitalization)
  Sender: FDA-Public Use
  Company Number: US-PROCTER_AND_GAMBLE-GS19064165

PATIENT
  Age: 34 Year
  Sex: Female

DRUGS (1)
  1. DIPHENHYDRAMINE HCL [Suspect]
     Active Substance: DIPHENHYDRAMINE HYDROCHLORIDE
     Dosage: FOUND WITH SEVEN BOTTLES, TWO OF WHICH WERE EMPTY

REACTIONS (15)
  - Pulse absent [Recovered/Resolved]
  - Drug level increased [Unknown]
  - Brain death [Not Recovered/Not Resolved]
  - Seizure [Unknown]
  - Unresponsive to stimuli [Unknown]
  - Electrocardiogram QRS complex prolonged [Recovered/Resolved]
  - Circulatory collapse [Recovered/Resolved]
  - Blood lactic acid increased [Unknown]
  - Overdose [Fatal]
  - Blood potassium increased [Unknown]
  - Electrocardiogram QT prolonged [Recovered/Resolved]
  - Cardiac arrest [Recovered/Resolved]
  - Pupillary light reflex tests abnormal [Unknown]
  - Acute respiratory distress syndrome [Unknown]
  - Neurogenic shock [Unknown]
